FAERS Safety Report 7658781-X (Version None)
Quarter: 2011Q3

REPORT INFORMATION
  Report Type: 
  Country: None (occurrence: None)
  Receive Date: 20110805
  Receipt Date: 20110805
  Transmission Date: 20111222
  Serious: No
  Sender: FDA-Public Use
  Company Number: None

PATIENT
  Sex: Female
  Weight: 83.007 kg

DRUGS (1)
  1. CIPROFLOXACIN [Suspect]
     Indication: EAR INFECTION
     Dosage: 500 MG
     Route: 048
     Dates: start: 20110712, end: 20110719

REACTIONS (4)
  - MUSCLE TWITCHING [None]
  - GAIT DISTURBANCE [None]
  - ARTHRALGIA [None]
  - TENDONITIS [None]
